FAERS Safety Report 25518296 (Version 1)
Quarter: 2025Q3

REPORT INFORMATION
  Report Type: Spontaneous
  Country: US (occurrence: US)
  Receive Date: 20250704
  Receipt Date: 20250704
  Transmission Date: 20251021
  Serious: No
  Sender: ABBVIE
  Company Number: US-ABBVIE-6351220

PATIENT
  Age: 43 Year
  Sex: Female

DRUGS (1)
  1. BOTOX [Suspect]
     Active Substance: ONABOTULINUMTOXINA
     Indication: Migraine
     Route: 030
     Dates: start: 20230809, end: 20230809

REACTIONS (3)
  - Nausea [Not Recovered/Not Resolved]
  - Headache [Unknown]
  - Product distribution issue [Unknown]

NARRATIVE: CASE EVENT DATE: 20250625
